FAERS Safety Report 4742032-X (Version None)
Quarter: 2005Q3

REPORT INFORMATION
  Report Type: 
  Country: None (occurrence: None)
  Receive Date: 20050727
  Receipt Date: 20040820
  Transmission Date: 20060218
  Serious: Yes (Hospitalization)
  Sender: FDA-Public Use
  Company Number: SAGL-ZLB/04/19/FRA

PATIENT
  Age: 13 Year
  Sex: Male
  Weight: 40 kg

DRUGS (1)
  1. SANDOGLOBULIN [Suspect]
     Indication: IMMUNODEFICIENCY
     Dosage: 12.5 G, EVERY 3 WEEKS, I.V.
     Route: 042
     Dates: start: 20040705, end: 20040705

REACTIONS (4)
  - ANAPHYLACTIC SHOCK [None]
  - CHILLS [None]
  - LIVEDO RETICULARIS [None]
  - PYREXIA [None]
